FAERS Safety Report 5332771-4 (Version None)
Quarter: 2007Q2

REPORT INFORMATION
  Report Type: 
  Country: None (occurrence: None)
  Receive Date: 20070518
  Receipt Date: 20070514
  Transmission Date: 20071010
  Serious: Yes (Hospitalization)
  Sender: FDA-Public Use
  Company Number: 2007SP009371

PATIENT
  Age: 79 Year
  Sex: Male

DRUGS (2)
  1. TEMODAL [Suspect]
     Indication: GLIOBLASTOMA MULTIFORME
     Dosage: 120 MG, QD; PO, 120 MG, QD; PO
     Route: 048
     Dates: end: 20070510
  2. TEMODAL [Suspect]
     Indication: GLIOBLASTOMA MULTIFORME
     Dosage: 120 MG, QD; PO, 120 MG, QD; PO
     Route: 048
     Dates: start: 20070208

REACTIONS (1)
  - SUICIDE ATTEMPT [None]
